FAERS Safety Report 7715574-2 (Version None)
Quarter: 2011Q3

REPORT INFORMATION
  Report Type: 
  Country: None (occurrence: None)
  Receive Date: 20110829
  Receipt Date: 20110818
  Transmission Date: 20111222
  Serious: Yes (Other)
  Sender: FDA-Public Use
  Company Number: US-JNJFOC-20110808952

PATIENT
  Sex: Female
  Weight: 68.04 kg

DRUGS (2)
  1. PREDNISONE [Concomitant]
     Indication: ARTHRITIS
     Route: 048
  2. REMICADE [Suspect]
     Indication: RHEUMATOID ARTHRITIS
     Route: 042
     Dates: start: 20110804

REACTIONS (3)
  - URTICARIA [None]
  - MALAISE [None]
  - MORBID THOUGHTS [None]
